FAERS Safety Report 5908035-4 (Version None)
Quarter: 2008Q4

REPORT INFORMATION
  Report Type: 
  Country: None (occurrence: None)
  Receive Date: 20081003
  Receipt Date: 20080911
  Transmission Date: 20090506
  Serious: No
  Sender: FDA-Public Use
  Company Number: US-B.I. PHARMACEUTICALS,INC./RIDGEFIELD-2007-BP-11529BP

PATIENT
  Sex: Male

DRUGS (10)
  1. MIRAPEX [Suspect]
     Indication: PARKINSON'S DISEASE
     Dosage: 4MG
     Dates: start: 19970801, end: 20061001
  2. ZELOPAR [Concomitant]
     Indication: PARKINSON'S DISEASE
     Dates: start: 20060927
  3. SINEMET [Concomitant]
     Indication: PARKINSON'S DISEASE
  4. PARCOPA [Concomitant]
     Indication: PARKINSON'S DISEASE
  5. STALEVO 100 [Concomitant]
     Indication: PARKINSON'S DISEASE
  6. AMANTADINE [Concomitant]
     Indication: PARKINSON'S DISEASE
  7. CIALIS [Concomitant]
  8. AMBIEN [Concomitant]
     Indication: INSOMNIA
  9. WELLBUTRIN XL [Concomitant]
  10. REQUIP [Concomitant]
     Indication: PARKINSON'S DISEASE

REACTIONS (5)
  - ANXIETY [None]
  - EMOTIONAL DISTRESS [None]
  - OBSESSIVE-COMPULSIVE DISORDER [None]
  - PAIN [None]
  - PATHOLOGICAL GAMBLING [None]
